FAERS Safety Report 7645215-4 (Version None)
Quarter: 2011Q3

REPORT INFORMATION
  Report Type: 
  Country: None (occurrence: None)
  Receive Date: 20110729
  Receipt Date: 20110719
  Transmission Date: 20111222
  Serious: Yes (Life-Threatening, Hospitalization, Other)
  Sender: FDA-Public Use
  Company Number: DE-BRISTOL-MYERS SQUIBB COMPANY-15931553

PATIENT
  Age: 43 Year
  Sex: Female
  Weight: 68 kg

DRUGS (10)
  1. METOPROLOL SUCCINATE [Concomitant]
     Dosage: PROLONGED RELEASE TABS
     Route: 048
     Dates: start: 20050101
  2. SERTRALINE HYDROCHLORIDE [Concomitant]
     Dosage: TABS
     Route: 048
     Dates: start: 20101001
  3. HYDROCHLOROTHIAZIDE [Concomitant]
     Route: 048
     Dates: start: 20100101
  4. METFORMIN HCL [Suspect]
     Dosage: 3000 MG
     Route: 048
     Dates: start: 20040101, end: 20110221
  5. FERRO SANOL [Concomitant]
     Dosage: FERRO SANOL DUODENAL GASTRO RESISTANT CAPS
     Route: 048
     Dates: start: 19800101
  6. AARANE [Concomitant]
     Dosage: 1 DF: 2 DF  4DF INHALATION GAS
     Route: 055
     Dates: start: 20001001
  7. LEVOTHYROXINE SODIUM [Concomitant]
     Dosage: TABS
     Route: 048
     Dates: start: 20040101
  8. ZYPREXA [Concomitant]
     Dosage: COATED TABS
     Route: 048
     Dates: start: 20100201
  9. VOLTAREN [Suspect]
     Dosage: VOLTAREN COATED TABS DOSAGE: 50MG 1X1 COATED TABS 2-3 X WEEKLY
     Route: 048
     Dates: start: 19800101
  10. OMEPRAZOLE [Concomitant]
     Dosage: TABS
     Route: 048
     Dates: start: 19900101

REACTIONS (2)
  - RENAL FAILURE ACUTE [None]
  - LACTIC ACIDOSIS [None]
